FAERS Safety Report 8465424-4 (Version None)
Quarter: 2012Q2

REPORT INFORMATION
  Report Type: 
  Country: None (occurrence: None)
  Receive Date: 20120626
  Receipt Date: 20120619
  Transmission Date: 20120825
  Serious: Yes (Other)
  Sender: FDA-Public Use
  Company Number: PHHY2012JP018361

PATIENT
  Sex: Female

DRUGS (7)
  1. AFINITOR [Suspect]
     Indication: PANCREATIC NEUROENDOCRINE TUMOUR
     Dosage: 5 MG, DAILY
     Route: 048
     Dates: start: 20111107, end: 20111221
  2. AFINITOR [Suspect]
     Dosage: 5 MG, DAILY
     Route: 048
     Dates: start: 20120216, end: 20120316
  3. AFINITOR [Suspect]
     Dosage: 10 MG, DAILY
     Route: 048
     Dates: start: 20120105, end: 20120215
  4. ETOPOSIDE [Concomitant]
     Indication: PANCREATIC NEUROENDOCRINE TUMOUR
     Route: 042
  5. AFINITOR [Suspect]
     Dosage: 10 MG, DAILY (ON EVEN DAYS)
     Route: 048
     Dates: start: 20111222
  6. AFINITOR [Suspect]
     Dosage: 5 MG, DAILY (ON ODD DAYS)
     Route: 048
     Dates: start: 20111223, end: 20120103
  7. CISPLATIN [Concomitant]
     Indication: PANCREATIC NEUROENDOCRINE TUMOUR
     Route: 042

REACTIONS (3)
  - NEOPLASM PROGRESSION [None]
  - NEOPLASM MALIGNANT [None]
  - LIVER DISORDER [None]
